FAERS Safety Report 5670208-6 (Version None)
Quarter: 2008Q1

REPORT INFORMATION
  Report Type: 
  Country: None (occurrence: None)
  Receive Date: 20080312
  Receipt Date: 20080228
  Transmission Date: 20080703
  Serious: Yes (Death)
  Sender: FDA-Public Use
  Company Number: E2020-01971-SPO-JP

PATIENT
  Age: 80 Year
  Sex: Male
  Weight: 50 kg

DRUGS (14)
  1. ARICEPT [Suspect]
     Indication: DEMENTIA ALZHEIMER'S TYPE
     Dosage: 3 MG, 1 IN 1 D, ORAL
     Route: 048
     Dates: start: 20070914, end: 20070915
  2. VOLTAREN [Concomitant]
  3. COOLSPAN             (SULPIRIDE) [Concomitant]
  4. DEPAS          (ETIZOLAM) [Concomitant]
  5. NITRAZEPAM [Concomitant]
  6. PHYSIO 140             (ACETATE RINGER SOLUTION) [Concomitant]
  7. SALSONIN             (SALICYLATE SODIUM) [Concomitant]
  8. AMINOPHYLLINE [Concomitant]
  9. AMINOFLUID           (AMINOFLUID) [Concomitant]
  10. FAMOTIDINE [Concomitant]
  11. ISOTONIC SODIUM CHLORIDE SOLUTION          (ISOTONIC SOLUTIONS) [Concomitant]
  12. GLYPHAGEN C  (STRONG NEO-MINOPHAGEN C) [Concomitant]
  13. ATARAX [Concomitant]
  14. CEFAZOLIN SODIUM [Concomitant]

REACTIONS (5)
  - DEHYDRATION [None]
  - DEPRESSED LEVEL OF CONSCIOUSNESS [None]
  - RESPIRATORY ARREST [None]
  - SHOCK [None]
  - SUDDEN DEATH [None]
